FAERS Safety Report 8113691-9 (Version None)
Quarter: 2012Q1

REPORT INFORMATION
  Report Type: 
  Country: None (occurrence: None)
  Receive Date: 20120203
  Receipt Date: 20120119
  Transmission Date: 20120608
  Serious: Yes (Hospitalization)
  Sender: FDA-Public Use
  Company Number: NL-MEDIMMUNE-MEDI-0014621

PATIENT
  Sex: Male

DRUGS (1)
  1. SYNAGIS [Suspect]
     Route: 030
     Dates: start: 20111123, end: 20111221

REACTIONS (3)
  - RESPIRATORY SYNCYTIAL VIRUS INFECTION [None]
  - RESPIRATORY DISORDER [None]
  - BRONCHITIS [None]
